FAERS Safety Report 23954964 (Version 1)
Quarter: 2024Q2

REPORT INFORMATION
  Report Type: Spontaneous
  Country: US (occurrence: US)
  Receive Date: 20240610
  Receipt Date: 20240610
  Transmission Date: 20240716
  Serious: No
  Sender: FDA-Public Use
  Company Number: US-GLK-002339

PATIENT
  Sex: Female

DRUGS (2)
  1. IDOSE TR [Suspect]
     Active Substance: TRAVOPROST
     Indication: Product used for unknown indication
     Dates: start: 20240214, end: 20240214
  2. DURYSTA [Concomitant]
     Active Substance: BIMATOPROST
     Indication: Product used for unknown indication
     Dates: start: 202308

REACTIONS (4)
  - Drug intolerance [Unknown]
  - Medical device removal [Unknown]
  - Eye inflammation [Unknown]
  - Drug ineffective [Unknown]

NARRATIVE: CASE EVENT DATE: 20240101
